FAERS Safety Report 8521289 (Version 2)
Quarter: 2012Q4

REPORT INFORMATION
  Report Type: Report from Study
  Country: DE (occurrence: DE)
  Receive Date: 20120419
  Receipt Date: 20121002
  Transmission Date: 20130627
  Serious: Yes (Hospitalization)
  Sender: FDA-Public Use
  Company Number: DE-PFIZER INC-2012092119

PATIENT
  Age: 61 Year
  Sex: Female
  Weight: 84 kg

DRUGS (12)
  1. GENOTROPIN [Suspect]
     Indication: GROWTH HORMONE DEFICIENCY
     Dosage: 0.13 UNK, 7 injections per week
     Dates: start: 20001205, end: 20010205
  2. GENOTROPIN [Suspect]
     Dosage: 0.3 UNK, 7 injections per week
     Dates: start: 20010619, end: 20011106
  3. GENOTROPIN [Suspect]
     Dosage: 0.4 UNK, 7 injections per week
     Dates: start: 20011107, end: 20030315
  4. GENOTROPIN [Suspect]
     Dosage: 0.3 UNK, 7 injections per week
     Dates: start: 20040316, end: 20060523
  5. GENOTROPIN [Suspect]
     Dosage: 0.4 UNK, 7 injections per week
     Dates: start: 20060524, end: 20071111
  6. GENOTROPIN [Suspect]
     Dosage: 0.5 UNK, 7 injections per week
     Dates: start: 20071112, end: 20071112
  7. GENOTROPIN [Suspect]
     Dosage: 0.4 UNK, 7 injections per week
     Dates: start: 20071113, end: 20090406
  8. GENOTROPIN [Suspect]
     Dosage: 0.3 UNK, 7 injections per week
     Dates: start: 20090407
  9. HYDROCORTISONE [Concomitant]
     Indication: BLOOD CORTICOTROPHIN DECREASED
     Dosage: 20 mg, daily
     Dates: start: 20001001
  10. L-THYROXIN [Concomitant]
     Dosage: UNK
     Dates: start: 20001001
  11. DESMOPRESSIN [Concomitant]
     Indication: BLOOD ANTIDIURETIC HORMONE DECREASED
     Dosage: 0.25 mg, daily
     Dates: start: 20040401
  12. SIMVASTATIN [Concomitant]
     Dosage: 10 mg, daily
     Dates: start: 20070123

REACTIONS (1)
  - Brain neoplasm [Recovered/Resolved]
